FAERS Safety Report 15843442 (Version 5)
Quarter: 2019Q2

REPORT INFORMATION
  Report Type: Spontaneous
  Country: US (occurrence: US)
  Receive Date: 20190118
  Receipt Date: 20190627
  Transmission Date: 20190711
  Serious: Yes (Other)
  Sender: FDA-Public Use
  Company Number: US-PFIZER INC-2019026474

PATIENT
  Age: 56 Year
  Sex: Female

DRUGS (1)
  1. GENOTROPIN MQ [Suspect]
     Active Substance: SOMATROPIN
     Dosage: 0.4 MG, DAILY, 7 DAYS PER WEEK
     Route: 058

REACTIONS (6)
  - Brain injury [Unknown]
  - Malaise [Unknown]
  - Intentional product use issue [Unknown]
  - Speech disorder [Unknown]
  - Pain [Unknown]
  - Fibromyalgia [Unknown]
